FAERS Safety Report 19969319 (Version 1)
Quarter: 2021Q4

REPORT INFORMATION
  Report Type: Spontaneous
  Country: PK (occurrence: PK)
  Receive Date: 20211019
  Receipt Date: 20211019
  Transmission Date: 20220303
  Serious: Yes (Hospitalization, Other)
  Sender: FDA-Public Use
  Company Number: PK-CASPER PHARMA LLC-2021CAS000503

PATIENT
  Age: 35 Year
  Sex: Male

DRUGS (1)
  1. BISMUTH SUBSALICYLATE\METRONIDAZOLE\TETRACYCLINE HYDROCHLORIDE [Suspect]
     Active Substance: BISMUTH SUBSALICYLATE\METRONIDAZOLE\TETRACYCLINE HYDROCHLORIDE
     Indication: Diarrhoea
     Dosage: 400 MILLIGRAM, TID
     Route: 048

REACTIONS (3)
  - Septic shock [Not Recovered/Not Resolved]
  - Cardiac arrest [Unknown]
  - Toxic epidermal necrolysis [Not Recovered/Not Resolved]
